FAERS Safety Report 6749199-2 (Version None)
Quarter: 2010Q2

REPORT INFORMATION
  Report Type: 
  Country: None (occurrence: None)
  Receive Date: 20100601
  Receipt Date: 20100520
  Transmission Date: 20101027
  Serious: Yes (Hospitalization)
  Sender: FDA-Public Use
  Company Number: JP-ASTRAZENECA-2010SE24520

PATIENT
  Age: 40 Year
  Sex: Female

DRUGS (11)
  1. MEROPEN [Suspect]
     Indication: PLEURISY
     Dosage: 0.5 G DAILY, THREE TIMES PER WEEK
     Route: 042
     Dates: start: 20100428, end: 20100503
  2. MEROPEN [Suspect]
     Route: 042
     Dates: start: 20100505, end: 20100505
  3. MEROPEN [Suspect]
     Route: 042
     Dates: start: 20100507, end: 20100507
  4. PRECIPITATED CALCIUM CARBONATE [Concomitant]
     Indication: HYPERPHOSPHATAEMIA
     Route: 048
  5. FUROSEMIDE [Concomitant]
     Indication: RENAL FAILURE CHRONIC
     Route: 048
  6. ASPIRIN [Concomitant]
     Indication: SHUNT THROMBOSIS
     Route: 048
  7. GASTER D [Concomitant]
     Indication: REFLUX OESOPHAGITIS
     Route: 048
  8. PANALDINE [Concomitant]
     Indication: SHUNT THROMBOSIS
     Route: 048
  9. LOXOPROFEN [Concomitant]
     Indication: PLEURISY
     Route: 048
     Dates: start: 20100426
  10. ZOVIRAX [Concomitant]
     Indication: PLEURISY
     Route: 048
     Dates: start: 20100428, end: 20100428
  11. REBAMIPIDE [Concomitant]
     Indication: GASTRITIS
     Route: 048
     Dates: start: 20100430

REACTIONS (4)
  - DEPRESSED LEVEL OF CONSCIOUSNESS [None]
  - HEADACHE [None]
  - RED BLOOD CELL COUNT DECREASED [None]
  - RESTLESSNESS [None]
